FAERS Safety Report 7791885-X (Version None)
Quarter: 2011Q4

REPORT INFORMATION
  Report Type: 
  Country: None (occurrence: None)
  Receive Date: 20111003
  Receipt Date: 20110929
  Transmission Date: 20120403
  Serious: No
  Sender: FDA-Public Use
  Company Number: US-PFIZER INC-2011168873

PATIENT
  Sex: Female
  Weight: 90.703 kg

DRUGS (4)
  1. IBUPROFEN (ADVIL) [Suspect]
     Indication: BACK DISORDER
  2. VICODIN [Concomitant]
     Indication: BACK DISORDER
     Dosage: UNK
  3. IBUPROFEN (ADVIL) [Suspect]
     Indication: SINUS HEADACHE
  4. IBUPROFEN (ADVIL) [Suspect]
     Indication: HEADACHE
     Dosage: UNK, AS NEEDED
     Route: 048
     Dates: start: 20110401, end: 20110601

REACTIONS (1)
  - DRUG INEFFECTIVE [None]
